FAERS Safety Report 5759495-3 (Version None)
Quarter: 2008Q2

REPORT INFORMATION
  Report Type: 
  Country: None (occurrence: None)
  Receive Date: 20080604
  Receipt Date: 20080604
  Transmission Date: 20081010
  Serious: Yes (Hospitalization)
  Sender: FDA-Public Use
  Company Number: None

PATIENT
  Age: 88 Year
  Sex: Female
  Weight: 65.7716 kg

DRUGS (1)
  1. RECLAST [Suspect]
     Dosage: 5 MG/100 ML

REACTIONS (8)
  - ARTHRALGIA [None]
  - BACK PAIN [None]
  - GLOSSODYNIA [None]
  - HOT FLUSH [None]
  - MUSCLE SPASMS [None]
  - MYALGIA [None]
  - PAIN [None]
  - STOMATITIS [None]
